FAERS Safety Report 6330015-8 (Version None)
Quarter: 2009Q3

REPORT INFORMATION
  Report Type: 
  Country: None (occurrence: None)
  Receive Date: 20090825
  Receipt Date: 20090805
  Transmission Date: 20100115
  Serious: Yes (Other)
  Sender: FDA-Public Use
  Company Number: CERZ-1000846

PATIENT
  Age: 45 Year
  Sex: Female
  Weight: 75 kg

DRUGS (1)
  1. CEREZYME [Suspect]
     Indication: GAUCHER'S DISEASE
     Dosage: 5.3 U/KG, Q2W, INTRAVENOUS
     Route: 042
     Dates: start: 19950401

REACTIONS (1)
  - SUPERIOR VENA CAVAL OCCLUSION [None]
